FAERS Safety Report 15037772 (Version 1)
Quarter: 2018Q2

REPORT INFORMATION
  Report Type: Report from Study
  Country: TR (occurrence: TR)
  Receive Date: 20180620
  Receipt Date: 20180620
  Transmission Date: 20180711
  Serious: Yes (Life-Threatening, Hospitalization)
  Sender: FDA-Public Use
  Company Number: TR-RECRO GAINESVILLE LLC-REPH-2018-000033

PATIENT
  Age: 16 Year
  Sex: Female

DRUGS (1)
  1. VERAPAMIL HYDROCHLORIDE SUSTAINED RELEASE [Suspect]
     Active Substance: VERAPAMIL HYDROCHLORIDE
     Indication: PRODUCT USED FOR UNKNOWN INDICATION
     Dosage: UNK

REACTIONS (9)
  - Dizziness [Unknown]
  - Abdominal pain [Unknown]
  - Bradycardia [Unknown]
  - Cardiac arrest [Recovered/Resolved]
  - Pleural effusion [Recovered/Resolved]
  - Intentional overdose [Recovered/Resolved]
  - Bundle branch block right [Unknown]
  - Asthenia [Unknown]
  - Nausea [Unknown]
